FAERS Safety Report 24036686 (Version 1)
Quarter: 2024Q3

REPORT INFORMATION
  Report Type: Spontaneous
  Country: NL (occurrence: NL)
  Receive Date: 20240701
  Receipt Date: 20240701
  Transmission Date: 20241016
  Serious: Yes (Hospitalization)
  Sender: MYLAN
  Company Number: NL-PFIZER INC-PV202400078386

PATIENT
  Age: 63 Year
  Sex: Female

DRUGS (2)
  1. ACYCLOVIR [Suspect]
     Active Substance: ACYCLOVIR
     Indication: Herpes simplex meningoencephalitis
     Dosage: UNK
     Route: 065
  2. CEFTRIAXONE [Suspect]
     Active Substance: CEFTRIAXONE\CEFTRIAXONE SODIUM
     Indication: Neuroborreliosis
     Dosage: UNK
     Route: 065

REACTIONS (2)
  - Bradyphrenia [Recovered/Resolved with Sequelae]
  - Headache [Recovered/Resolved]
